FAERS Safety Report 6240593-5 (Version None)
Quarter: 2009Q2

REPORT INFORMATION
  Report Type: 
  Country: None (occurrence: None)
  Receive Date: 20090623
  Receipt Date: 20081020
  Transmission Date: 20091009
  Serious: No
  Sender: FDA-Public Use
  Company Number: US-ASTRAZENECA-2008UW23235

PATIENT
  Sex: Female

DRUGS (3)
  1. PULMICORT RESPULES [Suspect]
     Indication: CHRONIC OBSTRUCTIVE PULMONARY DISEASE
     Dosage: 0.25 MG, FOUR TIMES DAILY
     Route: 055
  2. PULMICORT RESPULES [Suspect]
     Indication: ADENOCARCINOMA
     Dosage: 0.25 MG, FOUR TIMES DAILY
     Route: 055
  3. ALBUTEROL [Suspect]
     Dosage: FOUR TIMES A DAY
     Route: 065

REACTIONS (1)
  - LARYNGITIS [None]
